FAERS Safety Report 5789560-6 (Version None)
Quarter: 2008Q2

REPORT INFORMATION
  Report Type: 
  Country: None (occurrence: None)
  Receive Date: 20080626
  Receipt Date: 20080208
  Transmission Date: 20081010
  Serious: No
  Sender: FDA-Public Use
  Company Number: A0708384A

PATIENT
  Age: 61 Year
  Sex: Female
  Weight: 92.7 kg

DRUGS (2)
  1. ALLI [Suspect]
     Route: 048
     Dates: start: 20080204
  2. BLOOD PRESSURE MEDICATION [Concomitant]

REACTIONS (2)
  - ABDOMINAL DISTENSION [None]
  - CONSTIPATION [None]
